FAERS Safety Report 5398963-3 (Version None)
Quarter: 2007Q3

REPORT INFORMATION
  Report Type: 
  Country: None (occurrence: None)
  Receive Date: 20070725
  Receipt Date: 20070725
  Transmission Date: 20080115
  Serious: Yes (Hospitalization)
  Sender: FDA-Public Use
  Company Number: None

PATIENT
  Age: 78 Year
  Sex: Female

DRUGS (12)
  1. AMIODARONE HCL [Suspect]
     Dosage: 400 MG BID PO
     Route: 048
  2. ZETIA [Concomitant]
  3. SIMVASTATIN [Concomitant]
  4. ASPIRIN [Concomitant]
  5. PROTONIX [Concomitant]
  6. LOPRESSOR [Concomitant]
  7. TYLENOL (CAPLET) [Concomitant]
  8. ALBUTEROL [Concomitant]
  9. COUMADIN [Concomitant]
  10. LASIX [Concomitant]
  11. DILAUDID [Concomitant]
  12. DIGOXIN [Concomitant]

REACTIONS (1)
  - JAUNDICE [None]
